FAERS Safety Report 6275708-6 (Version None)
Quarter: 2009Q3

REPORT INFORMATION
  Report Type: 
  Country: None (occurrence: None)
  Receive Date: 20090721
  Receipt Date: 20090709
  Transmission Date: 20100115
  Serious: Yes (Other)
  Sender: FDA-Public Use
  Company Number: PHHY2009MX28423

PATIENT
  Sex: Female

DRUGS (5)
  1. DIOVAN HCT [Suspect]
     Indication: HYPERTENSION
     Dosage: 1 DF (160/12.5)/ DAY
     Route: 048
     Dates: start: 20050622
  2. DIOVAN HCT [Suspect]
     Dosage: 2 DF (160/12.5)/ DAY
     Route: 048
     Dates: start: 20050622
  3. DIOVAN HCT [Suspect]
     Dosage: 1 DF (160/12.5)/ DAY
     Route: 048
     Dates: start: 20050622
  4. INSULIN [Concomitant]
     Indication: DIABETES MELLITUS
     Dosage: 25 U/ DAY
  5. GLUCOBAY [Concomitant]
     Indication: DIABETES MELLITUS
     Dosage: 3 DF/ DAY

REACTIONS (4)
  - BREAST CANCER [None]
  - HYPERTENSION [None]
  - HYPOTENSION [None]
  - SURGERY [None]
